FAERS Safety Report 10909184 (Version 1)
Quarter: 2015Q1

REPORT INFORMATION
  Report Type: Spontaneous
  Country: US (occurrence: US)
  Receive Date: 20150312
  Receipt Date: 20150312
  Transmission Date: 20150721
  Serious: No
  Sender: FDA-Public Use
  Company Number: US-SA-2014SA035927

PATIENT
  Age: 75 Year
  Sex: Male
  Weight: 74 kg

DRUGS (2)
  1. NASACORT ALLERGY 24HR [Suspect]
     Active Substance: TRIAMCINOLONE ACETONIDE
     Indication: NASAL DRYNESS
     Dosage: PRODUCT START DATE- 1 WEEK?DOASGE 24 HR
     Route: 065
     Dates: start: 20140312
  2. NASACORT ALLERGY 24HR [Suspect]
     Active Substance: TRIAMCINOLONE ACETONIDE
     Indication: SEASONAL ALLERGY
     Dosage: PRODUCT START DATE- 1 WEEK?DOASGE 24 HR
     Route: 065
     Dates: start: 20140312

REACTIONS (2)
  - Dry mouth [Recovered/Resolved]
  - Dry throat [Unknown]
